FAERS Safety Report 8112615-8 (Version None)
Quarter: 2012Q1

REPORT INFORMATION
  Report Type: 
  Country: None (occurrence: None)
  Receive Date: 20120203
  Receipt Date: 20120124
  Transmission Date: 20120608
  Serious: Yes (Hospitalization)
  Sender: FDA-Public Use
  Company Number: CA-ELI_LILLY_AND_COMPANY-CA201201007074

PATIENT
  Sex: Female
  Weight: 44.3 kg

DRUGS (16)
  1. OXYCONTIN [Concomitant]
     Dosage: 40 MG, BID
     Dates: start: 20111228
  2. METOCLOP [Concomitant]
     Dosage: 10 MG, PRN
  3. SYMBICORT [Concomitant]
     Dosage: 2 DF, BID
     Route: 055
  4. ONDANSETRON HCL [Concomitant]
     Dosage: 8 MG, PRN
  5. ALBUTEROL SULFATE AUTOHALER [Concomitant]
     Dosage: 2 DF, PRN
  6. OXYCONTIN [Concomitant]
     Dosage: 5 MG, PRN
  7. DECADRON [Concomitant]
     Dosage: 4 MG, BID
  8. DEXAMETHASONE [Concomitant]
     Dosage: 4 MG, BID
  9. LANSOPRAZOLE [Concomitant]
     Dosage: 50 MG, UNK
  10. DOCUSATE [Concomitant]
  11. LACTULOSE [Concomitant]
  12. GEMCITABINE HYDROCHLORIDE [Suspect]
     Dosage: UNK
     Dates: start: 20111221, end: 20120125
  13. CISPLATIN [Suspect]
     Dosage: UNK
     Dates: start: 20111221
  14. ONDANSETRON [Concomitant]
     Dosage: 8 MG, PRN
     Dates: start: 20111222
  15. ATIVAN [Concomitant]
     Dosage: 1 MG, EACH EVENING
  16. SENNA [Concomitant]
     Dosage: UNK

REACTIONS (1)
  - ABDOMINAL PAIN [None]
